FAERS Safety Report 11062852 (Version 5)
Quarter: 2015Q3

REPORT INFORMATION
  Report Type: Spontaneous
  Country: US (occurrence: US)
  Receive Date: 20150424
  Receipt Date: 20150928
  Transmission Date: 20151125
  Serious: Yes (Hospitalization, Other)
  Sender: FDA-Public Use
  Company Number: US-BAXTER-2015BAX021629

PATIENT
  Age: 62 Year
  Sex: Female

DRUGS (2)
  1. DIANEAL LOW CALCIUM PERITONEAL DIALYSIS SOLUTION WITH DEXTROSE [Suspect]
     Active Substance: CALCIUM CHLORIDE\DEXTROSE\MAGNESIUM CHLORIDE\SODIUM CHLORIDE\SODIUM LACTATE
     Indication: PERITONEAL DIALYSIS
  2. DIANEAL LOW CALCIUM PERITONEAL DIALYSIS SOLUTION WITH DEXTROSE [Suspect]
     Active Substance: CALCIUM CHLORIDE\DEXTROSE\MAGNESIUM CHLORIDE\SODIUM CHLORIDE\SODIUM LACTATE
     Indication: CHRONIC KIDNEY DISEASE
     Route: 033
     Dates: start: 2012

REACTIONS (9)
  - Myocardial infarction [Recovering/Resolving]
  - Multimorbidity [Recovering/Resolving]
  - Coronary artery occlusion [Recovering/Resolving]
  - Ammonia increased [Recovering/Resolving]
  - Nosocomial infection [Recovered/Resolved]
  - Peritoneal dialysis complication [Unknown]
  - Stent malfunction [Recovering/Resolving]
  - Asthenia [Recovering/Resolving]
  - Peritonitis [Recovered/Resolved]

NARRATIVE: CASE EVENT DATE: 201502
